FAERS Safety Report 5867455-7 (Version None)
Quarter: 2008Q3

REPORT INFORMATION
  Report Type: 
  Country: None (occurrence: None)
  Receive Date: 20080902
  Receipt Date: 20080902
  Transmission Date: 20090109
  Serious: Yes (Hospitalization)
  Sender: FDA-Public Use
  Company Number: PHEH1996US10612

PATIENT
  Sex: Male
  Weight: 75.9 kg

DRUGS (9)
  1. NEORAL [Suspect]
     Route: 048
     Dates: start: 19950219
  2. SEPTRA DS [Concomitant]
     Dosage: UNSPECIFIED
     Route: 065
  3. METAMUCIL [Concomitant]
     Dosage: UNSPECIFIED
     Route: 065
  4. IMURAN [Suspect]
     Dosage: UNSPECIFIED
     Route: 065
  5. ACTIGALL [Concomitant]
     Dosage: UNSPECIFIED
     Route: 065
  6. PREDNISONE TAB [Concomitant]
     Dosage: UNSPECIFIED
     Route: 065
  7. PRILOSEC [Concomitant]
     Dosage: UNSPECIFIED
     Route: 065
  8. AZULFIDINE EN-TABS [Concomitant]
     Dosage: UNSPECIFIED
     Route: 065
  9. SULFASALAZINE [Concomitant]
     Dosage: UNSPECIFIED
     Route: 065

REACTIONS (3)
  - ANAEMIA MEGALOBLASTIC [None]
  - SEPSIS [None]
  - TRANSPLANT REJECTION [None]
